FAERS Safety Report 8542646-5 (Version None)
Quarter: 2012Q3

REPORT INFORMATION
  Report Type: 
  Country: None (occurrence: None)
  Receive Date: 20120727
  Receipt Date: 20120717
  Transmission Date: 20120928
  Serious: Yes (Other)
  Sender: FDA-Public Use
  Company Number: JP-AMGEN-JPNSP2012039055

PATIENT
  Sex: Female

DRUGS (2)
  1. ENBREL [Suspect]
     Indication: RHEUMATOID ARTHRITIS
     Dosage: 50 MG, QWK
     Route: 058
     Dates: start: 20060601
  2. RHEUMATREX [Suspect]
     Dosage: UNK
     Route: 048

REACTIONS (4)
  - EPISTAXIS [None]
  - BLOOD CHOLESTEROL INCREASED [None]
  - AGE-RELATED MACULAR DEGENERATION [None]
  - HERNIA [None]
